FAERS Safety Report 20073788 (Version 1)
Quarter: 2021Q4

REPORT INFORMATION
  Report Type: Spontaneous
  Country: US (occurrence: None)
  Receive Date: 20211112
  Receipt Date: 20211112
  Transmission Date: 20220304
  Serious: Yes (Death)
  Sender: FDA-Public Use
  Company Number: None

PATIENT
  Sex: Female
  Weight: 201.85 kg

DRUGS (18)
  1. TEMOZOLOMIDE [Suspect]
     Active Substance: TEMOZOLOMIDE
     Indication: Product used for unknown indication
     Dosage: FREQUENCY : DAILY;?
     Route: 048
     Dates: start: 20210202, end: 20211112
  2. COENZYME Q10 [Concomitant]
     Active Substance: DIETARY SUPPLEMENT\UBIDECARENONE
  3. SUMATRIPTAN SUCCINATE [Concomitant]
     Active Substance: SUMATRIPTAN SUCCINATE
  4. ZOLPIDEM [Concomitant]
     Active Substance: ZOLPIDEM TARTRATE
  5. VALACYCLOVIR [Concomitant]
     Active Substance: VALACYCLOVIR HYDROCHLORIDE
  6. FISH OIL [Concomitant]
     Active Substance: FISH OIL
  7. DIETARY SUPPLEMENT\HERBALS\MILK THISTLE [Concomitant]
     Active Substance: DIETARY SUPPLEMENT\HERBALS\MILK THISTLE
  8. TEA [Concomitant]
     Active Substance: TEA LEAF
  9. D3 HIGH POTENCY [Concomitant]
  10. REISHI [Concomitant]
     Active Substance: REISHI
  11. PROBIOTICS NOS [Concomitant]
     Active Substance: PROBIOTICS NOS
  12. ASPIRIN [Concomitant]
     Active Substance: ASPIRIN
  13. BETAMETHASONE [Concomitant]
     Active Substance: BETAMETHASONE
  14. CLOBETASOL [Concomitant]
     Active Substance: CLOBETASOL
  15. VITAMIN D NOS [Concomitant]
     Active Substance: VITAMIN D NOS
  16. CYCLOSPORINE [Concomitant]
     Active Substance: CYCLOSPORINE
  17. MELATONIN [Concomitant]
     Active Substance: MELATONIN
  18. AVASTIN [Concomitant]
     Active Substance: BEVACIZUMAB
     Dosage: FREQUENCY : DAILY;?
     Route: 048
     Dates: start: 20210202, end: 20211112

REACTIONS (1)
  - Death [None]
